FAERS Safety Report 24597837 (Version 1)
Quarter: 2024Q4

REPORT INFORMATION
  Report Type: Spontaneous
  Country: US (occurrence: US)
  Receive Date: 20241110
  Receipt Date: 20241110
  Transmission Date: 20250115
  Serious: No
  Sender: SANOFI AVENTIS
  Company Number: US-SA-2024SA302406

PATIENT
  Age: 17 Year
  Sex: Female

DRUGS (1)
  1. THYROGEN [Suspect]
     Active Substance: THYROTROPIN ALFA
     Indication: Thyroid cancer
     Dosage: 1.1 MG, BID
     Route: 030

REACTIONS (2)
  - Product prescribing issue [Unknown]
  - Product administered to patient of inappropriate age [Unknown]
